FAERS Safety Report 10082112 (Version 1)
Quarter: 2014Q2

REPORT INFORMATION
  Report Type: Spontaneous
  Country: FR (occurrence: FR)
  Receive Date: 20140416
  Receipt Date: 20140416
  Transmission Date: 20141212
  Serious: Yes (Life-Threatening, Hospitalization)
  Sender: FDA-Public Use
  Company Number: FR-BRISTOL-MYERS SQUIBB COMPANY-20635140

PATIENT
  Age: 61 Year
  Sex: Male

DRUGS (3)
  1. METFORMIN HCL [Suspect]
     Dosage: 1000MG,3 IN 1 D?ORAL?JUL-2013-31DEC2013
  2. TAHOR [Suspect]
     Route: 048
     Dates: start: 20031223
  3. STAGID [Concomitant]
     Dosage: TABLET
     Route: 048
     Dates: start: 2007

REACTIONS (3)
  - Dyspepsia [Unknown]
  - Gastrointestinal hypomotility [Unknown]
  - Abdominal pain [Not Recovered/Not Resolved]
